FAERS Safety Report 5585461-7 (Version None)
Quarter: 2008Q1

REPORT INFORMATION
  Report Type: 
  Country: None (occurrence: None)
  Receive Date: 20080104
  Receipt Date: 20071211
  Transmission Date: 20080703
  Serious: Yes (Other)
  Sender: FDA-Public Use
  Company Number: 2007S1013454

PATIENT
  Age: 61 Year
  Sex: Female

DRUGS (9)
  1. PRAVASTATIN [Suspect]
     Indication: HYPERCHOLESTEROLAEMIA
     Dosage: 40 MG;DAILY
  2. FORADIL [Concomitant]
  3. EFEXOR XR (VENLAFAXINE) [Concomitant]
  4. PYRIDOXINE HCL PCH (PYRIDOXINE HYDROCHLORIDE) [Concomitant]
  5. RANITIDINE [Concomitant]
  6. SALBUTAMOL (SALBUTAMOL SULFATE) [Concomitant]
  7. FOLIUMZUR (FOLIC ACID) [Concomitant]
  8. PULMICORT [Concomitant]
  9. ASASANTIN (DIPYRIDAMOLE) [Concomitant]

REACTIONS (6)
  - ANOREXIA [None]
  - MUSCULAR WEAKNESS [None]
  - MYALGIA [None]
  - NAUSEA [None]
  - RENAL IMPAIRMENT [None]
  - VOMITING [None]
